FAERS Safety Report 8111011-7 (Version None)
Quarter: 2012Q1

REPORT INFORMATION
  Report Type: 
  Country: None (occurrence: None)
  Receive Date: 20120203
  Receipt Date: 20110210
  Transmission Date: 20120608
  Serious: No
  Sender: FDA-Public Use
  Company Number: US-GLAXOSMITHKLINE-A0912913A

PATIENT
  Age: 37 Year
  Sex: Female

DRUGS (9)
  1. SEROQUEL [Concomitant]
     Dosage: 100MG PER DAY
     Route: 048
  2. AMITIZA [Concomitant]
  3. NAPROXEN [Concomitant]
  4. LAMOTRIGINE [Suspect]
     Indication: BIPOLAR DISORDER
     Dosage: 300MG PER DAY
     Route: 048
     Dates: start: 20070101
  5. PROVIGIL [Concomitant]
  6. VESICARE [Concomitant]
  7. EFFEXOR [Concomitant]
  8. AVONEX [Concomitant]
  9. RAZADYNE [Concomitant]

REACTIONS (2)
  - TENSION [None]
  - HEADACHE [None]
